FAERS Safety Report 22387137 (Version 2)
Quarter: 2023Q2

REPORT INFORMATION
  Report Type: Report from Study
  Country: US (occurrence: None)
  Receive Date: 20230531
  Receipt Date: 20230602
  Transmission Date: 20230722
  Serious: Yes (Hospitalization)
  Sender: FDA-Public Use
  Company Number: US-ROCHE-3358390

PATIENT
  Age: 65 Year

DRUGS (2)
  1. ATEZOLIZUMAB [Suspect]
     Active Substance: ATEZOLIZUMAB
     Indication: Endometrial cancer
     Dosage: DAY 1 OF EACH 28-DAY CYCLE?LAST DOSE DATE PRIOR TO SAE/AESI: 24/MAR/2023
     Route: 042
     Dates: start: 20230324
  2. TALAZOPARIB [Suspect]
     Active Substance: TALAZOPARIB
     Indication: Endometrial cancer
     Dosage: LAST DOSE DATE PRIOR TO SAE/AESI: 12/APR/2023?ONCE DAILY FOR EACH DAY OF THE 28-DAY CYCLE
     Route: 048
     Dates: start: 20230324

REACTIONS (1)
  - Pain in extremity [Not Recovered/Not Resolved]

NARRATIVE: CASE EVENT DATE: 20230524
